FAERS Safety Report 7570984-1 (Version None)
Quarter: 2011Q2

REPORT INFORMATION
  Report Type: 
  Country: None (occurrence: None)
  Receive Date: 20110624
  Receipt Date: 20110413
  Transmission Date: 20111010
  Serious: Yes (Other)
  Sender: FDA-Public Use
  Company Number: CH-ROCHE-749278

PATIENT
  Age: 62 Year
  Sex: Male

DRUGS (1)
  1. TAMIFLU [Suspect]
     Route: 065

REACTIONS (4)
  - HOMICIDAL IDEATION [None]
  - DELIRIUM [None]
  - HALLUCINATION [None]
  - OVERDOSE [None]
